FAERS Safety Report 11491748 (Version 1)
Quarter: 2015Q3

REPORT INFORMATION
  Report Type: Spontaneous
  Country: CH (occurrence: CH)
  Receive Date: 20150910
  Receipt Date: 20150910
  Transmission Date: 20151125
  Serious: Yes (Hospitalization, Other)
  Sender: FDA-Public Use
  Company Number: CH-TEVA-592119ISR

PATIENT
  Age: 18 Year
  Sex: Female

DRUGS (4)
  1. AMOXICILLIN/CLAVULANIC ACID [Suspect]
     Active Substance: AMOXICILLIN\CLAVULANIC ACID
     Indication: BACTERIAL INFECTION
     Route: 065
     Dates: start: 2014
  2. TERBINAFINE. [Suspect]
     Active Substance: TERBINAFINE
     Indication: ANTIFUNGAL TREATMENT
     Dosage: 250 MILLIGRAM DAILY;
     Route: 065
     Dates: start: 2014, end: 2014
  3. ITRACONAZOLE. [Suspect]
     Active Substance: ITRACONAZOLE
     Indication: ANTIFUNGAL TREATMENT
     Dosage: 300 MILLIGRAM DAILY;
     Route: 065
     Dates: start: 2014, end: 2014
  4. PREDNISONE. [Concomitant]
     Active Substance: PREDNISONE
     Dosage: 50 MILLIGRAM DAILY;
     Route: 048

REACTIONS (5)
  - Ulcer [Recovered/Resolved with Sequelae]
  - Drug ineffective [Unknown]
  - Pain [Unknown]
  - Inflammation [Recovered/Resolved with Sequelae]
  - Scar [Recovered/Resolved with Sequelae]

NARRATIVE: CASE EVENT DATE: 2014
